FAERS Safety Report 6725441-9 (Version None)
Quarter: 2010Q2

REPORT INFORMATION
  Report Type: 
  Country: None (occurrence: None)
  Receive Date: 20100514
  Receipt Date: 20100504
  Transmission Date: 20101027
  Serious: Yes (Death)
  Sender: FDA-Public Use
  Company Number: US-JNJFOC-20100109605

PATIENT
  Sex: Female
  Weight: 55.79 kg

DRUGS (2)
  1. REMICADE [Suspect]
     Indication: RHEUMATOID ARTHRITIS
     Dosage: DOSE= 2VIALS
     Route: 042
  2. NSAID [Concomitant]
     Indication: RHEUMATOID ARTHRITIS
     Dosage: DURATION= ^GREATER THAN 6 MONTHS^

REACTIONS (3)
  - CEREBROVASCULAR ACCIDENT [None]
  - FALL [None]
  - PULMONARY EMBOLISM [None]
